FAERS Safety Report 19084676 (Version 1)
Quarter: 2021Q2

REPORT INFORMATION
  Report Type: Spontaneous
  Country: DE (occurrence: DE)
  Receive Date: 20210402
  Receipt Date: 20210402
  Transmission Date: 20210717
  Serious: Yes (Other)
  Sender: FDA-Public Use
  Company Number: DE-ASTRAZENECA-2021A204701

PATIENT
  Age: 59 Year
  Sex: Female

DRUGS (1)
  1. BRIMICA GENUAIR [Suspect]
     Active Substance: ACLIDINIUM BROMIDE\FORMOTEROL FUMARATE
     Indication: CHRONIC OBSTRUCTIVE PULMONARY DISEASE
     Dosage: 340 ??G/12 ??G 1 DF EVERY 12 HOURS
     Route: 055
     Dates: start: 202102

REACTIONS (2)
  - Device breakage [Unknown]
  - Foreign body aspiration [Recovered/Resolved]

NARRATIVE: CASE EVENT DATE: 20210302
